FAERS Safety Report 4450480-0 (Version None)
Quarter: 2004Q3

REPORT INFORMATION
  Report Type: 
  Country: None (occurrence: None)
  Receive Date: 20040913
  Receipt Date: 20040909
  Transmission Date: 20050211
  Serious: Yes (Hospitalization, Other)
  Sender: FDA-Public Use
  Company Number: HQWYE971010SEP04

PATIENT
  Age: 34 Year
  Sex: Female
  Weight: 53.57 kg

DRUGS (1)
  1. MYLOTARG [Suspect]
     Indication: ACUTE MYELOID LEUKAEMIA
     Dosage: 6.6 MG 1X PER 1 DAY, INTRAVENOUS
     Route: 042
     Dates: start: 20040624, end: 20040624

REACTIONS (2)
  - PYREXIA [None]
  - THROMBOCYTOPENIA [None]
